FAERS Safety Report 16958955 (Version 1)
Quarter: 2019Q4

REPORT INFORMATION
  Report Type: Report from Study
  Country: CO (occurrence: CO)
  Receive Date: 20191024
  Receipt Date: 20191024
  Transmission Date: 20200122
  Serious: Yes (Other)
  Sender: FDA-Public Use
  Company Number: PHHY2019CO187443

PATIENT
  Age: 60 Year
  Sex: Female
  Weight: 73 kg

DRUGS (5)
  1. VOTRIENT [Suspect]
     Active Substance: PAZOPANIB HYDROCHLORIDE
     Dosage: 400 MG, QD
     Route: 048
  2. VOTRIENT [Suspect]
     Active Substance: PAZOPANIB HYDROCHLORIDE
     Dosage: 800 MG, QD
     Route: 048
     Dates: start: 20190814
  3. VOTRIENT [Suspect]
     Active Substance: PAZOPANIB HYDROCHLORIDE
     Indication: METASTATIC RENAL CELL CARCINOMA
     Dosage: 800 MG, QD
     Route: 048
     Dates: start: 2016, end: 2017
  4. METFORMIN HYDROCHLORIDE. [Suspect]
     Active Substance: METFORMIN HYDROCHLORIDE
     Indication: DIABETES MELLITUS
     Dosage: 850 MG, QD (DAILY)
     Route: 048
  5. SUNITINIB [Suspect]
     Active Substance: SUNITINIB
     Indication: METASTASES TO LUNG
     Dosage: UNK
     Route: 048

REACTIONS (6)
  - Headache [Unknown]
  - Stomatitis [Unknown]
  - Metastases to lung [Unknown]
  - Pulmonary mass [Unknown]
  - Hypertension [Unknown]
  - Dizziness [Unknown]

NARRATIVE: CASE EVENT DATE: 201901
